FAERS Safety Report 21339518 (Version 2)
Quarter: 2022Q4

REPORT INFORMATION
  Report Type: Report from Study
  Country: US (occurrence: US)
  Receive Date: 20220915
  Receipt Date: 20221003
  Transmission Date: 20230113
  Serious: No
  Sender: FDA-Public Use
  Company Number: US-SA-SAC20220912000195

PATIENT
  Age: 35 Year
  Sex: Female

DRUGS (8)
  1. TERIFLUNOMIDE [Suspect]
     Active Substance: TERIFLUNOMIDE
     Indication: Multiple sclerosis
     Dosage: 7 MG, QD
     Route: 048
     Dates: start: 20220705
  2. TOPIRAMATE [Concomitant]
     Active Substance: TOPIRAMATE
  3. LEFLUNOMIDE [Concomitant]
     Active Substance: LEFLUNOMIDE
  4. IBUPROFEN [Concomitant]
     Active Substance: IBUPROFEN
  5. SUMATRIPTAN [Concomitant]
     Active Substance: SUMATRIPTAN
  6. PREDNISONE [Concomitant]
     Active Substance: PREDNISONE
  7. AMANTADINE [Concomitant]
     Active Substance: AMANTADINE
  8. GABAPENTIN [Concomitant]
     Active Substance: GABAPENTIN

REACTIONS (1)
  - Confusional state [Not Recovered/Not Resolved]
